FAERS Safety Report 12806222 (Version 1)
Quarter: 2016Q4

REPORT INFORMATION
  Report Type: Spontaneous
  Country: GB (occurrence: None)
  Receive Date: 20161003
  Receipt Date: 20161003
  Transmission Date: 20170207
  Serious: Yes (Hospitalization)
  Sender: FDA-Public Use
  Company Number: GB2016K5266SPO

PATIENT
  Age: 69 Year
  Sex: Female

DRUGS (7)
  1. LANSOPRAZOLE GENERIC (LANSOPRAZOLE) (UNKNOWN) [Suspect]
     Active Substance: LANSOPRAZOLE
     Route: 048
     Dates: start: 20110626, end: 20160823
  2. THIAMINE. [Concomitant]
     Active Substance: THIAMINE
  3. MAGNESIUM GLYCEROPHOSPHATE [Concomitant]
     Active Substance: MAGNESIUM GLYCEROPHOSPHATE
  4. VITAMIN B COMPOUND (NICOTINAMIDE, RIBOFLAVINE, THIAMINE HYDROCHLORIDE) [Concomitant]
  5. CALCIUM AND COLECALCIFEROL (CALCIUM CARBONATE, CALCIUM PHOSPHATE, COLECALCIFEROL) [Concomitant]
  6. PERINDOPRIL GENERIC (PERINDOPRIL) (UNKNOWN) [Suspect]
     Active Substance: PERINDOPRIL
     Route: 048
     Dates: start: 20110626, end: 20160823
  7. PROPRANOLOL [Concomitant]
     Active Substance: PROPRANOLOL\PROPRANOLOL HYDROCHLORIDE

REACTIONS (3)
  - Fracture [None]
  - Fall [None]
  - Hyponatraemia [None]

NARRATIVE: CASE EVENT DATE: 20160823
